FAERS Safety Report 8961392 (Version 1)
Quarter: 2012Q4

REPORT INFORMATION
  Report Type: 
  Country: US (occurrence: US)
  Receive Date: 20121213
  Receipt Date: 20121213
  Transmission Date: 20130627
  Serious: No
  Sender: FDA-Public Use
  Company Number: US-ALLERGAN-1211419US

PATIENT
  Age: 67 Year
  Sex: Male

DRUGS (1)
  1. ACZONE [Suspect]
     Indication: ACNE
     Dosage: apply to affected area qd
     Route: 061

REACTIONS (1)
  - Skin burning sensation [Recovering/Resolving]
